FAERS Safety Report 7477763-4 (Version None)
Quarter: 2011Q2

REPORT INFORMATION
  Report Type: 
  Country: None (occurrence: None)
  Receive Date: 20110511
  Receipt Date: 20110511
  Transmission Date: 20111010
  Serious: Yes (Death)
  Sender: FDA-Public Use
  Company Number: None

PATIENT
  Age: 90 Year
  Sex: Male

DRUGS (7)
  1. SENNOSIDES [Concomitant]
  2. BISACODYL [Concomitant]
  3. HYDROMORPHONE HCL [Concomitant]
  4. POTASSIUM CHLORIDE [Concomitant]
  5. REVLIMID [Suspect]
     Indication: MULTIPLE MYELOMA
     Dosage: REVLIMID 15 MG DAILY X14D/28D ORALLY
     Route: 048
     Dates: start: 20090801, end: 20100301
  6. REVLIMID [Suspect]
     Indication: MULTIPLE MYELOMA
     Dosage: REVLIMID 15 MG DAILY X14D/28D ORALLY
     Route: 048
     Dates: start: 20100801, end: 20101201
  7. MORPHINE [Concomitant]

REACTIONS (5)
  - RENAL TUBULAR NECROSIS [None]
  - COAGULOPATHY [None]
  - URINARY TRACT INFECTION [None]
  - COLON CANCER [None]
  - METASTASES TO LIVER [None]
